FAERS Safety Report 5198043-6 (Version None)
Quarter: 2007Q1

REPORT INFORMATION
  Report Type: 
  Country: None (occurrence: None)
  Receive Date: 20070104
  Receipt Date: 20061227
  Transmission Date: 20070707
  Serious: Yes (Hospitalization)
  Sender: FDA-Public Use
  Company Number: JP-JNJFOC-20060703504

PATIENT
  Sex: Male
  Weight: 53 kg

DRUGS (22)
  1. REMICADE [Suspect]
     Route: 042
  2. REMICADE [Suspect]
     Route: 042
  3. REMICADE [Suspect]
     Route: 042
  4. REMICADE [Suspect]
     Dosage: DOSE 6-17 GIVEN ON UNSPECIFIED DATES.
     Route: 042
  5. REMICADE [Suspect]
     Route: 042
  6. REMICADE [Suspect]
     Route: 042
  7. REMICADE [Suspect]
     Route: 042
  8. REMICADE [Suspect]
     Route: 042
  9. REMICADE [Suspect]
     Indication: RHEUMATOID ARTHRITIS
     Route: 042
  10. PREDONINE [Suspect]
     Indication: RHEUMATOID ARTHRITIS
     Route: 048
  11. RHEUMATREX [Suspect]
     Indication: RHEUMATOID ARTHRITIS
     Route: 048
  12. PREDNISOLONE [Suspect]
     Indication: RHEUMATOID ARTHRITIS
     Route: 048
  13. PROGRAF [Suspect]
     Indication: RHEUMATOID ARTHRITIS
     Route: 048
  14. RHEUMATREX [Concomitant]
     Route: 048
  15. RHEUMATREX [Concomitant]
     Route: 048
  16. BREDININ [Concomitant]
     Indication: RHEUMATOID ARTHRITIS
     Route: 048
  17. AZULFIDINE EN-TABS [Concomitant]
     Indication: RHEUMATOID ARTHRITIS
     Route: 048
  18. LOXONIN [Concomitant]
     Indication: RHEUMATOID ARTHRITIS
     Route: 048
  19. MUCOSTA [Concomitant]
     Route: 048
  20. CYTOTEC [Concomitant]
     Route: 048
  21. PROGRAF [Concomitant]
     Route: 048
  22. ADRENAL HORMONE PREPARATION [Concomitant]

REACTIONS (1)
  - PNEUMOCYSTIS JIROVECI PNEUMONIA [None]
